FAERS Safety Report 18542618 (Version 1)
Quarter: 2020Q4

REPORT INFORMATION
  Report Type: Spontaneous
  Country: US (occurrence: US)
  Receive Date: 20201124
  Receipt Date: 20201124
  Transmission Date: 20210114
  Serious: No
  Sender: FDA-Public Use
  Company Number: US-LUNDBECK-DKLU3022219

PATIENT
  Age: 32 Year
  Sex: Female

DRUGS (7)
  1. NORTHERA [Suspect]
     Active Substance: DROXIDOPA
     Dosage: NEW LOWERED DOSE
     Route: 048
  2. NORTHERA [Suspect]
     Active Substance: DROXIDOPA
     Dosage: DAY 9 TO 10
     Route: 048
     Dates: start: 202008
  3. NORTHERA [Suspect]
     Active Substance: DROXIDOPA
     Indication: ORTHOSTATIC HYPOTENSION
     Dosage: DAY 1 TO 2
     Route: 048
     Dates: start: 202008
  4. NORTHERA [Suspect]
     Active Substance: DROXIDOPA
     Dosage: DAY 11 AND ONWARD
     Route: 048
     Dates: start: 202008
  5. NORTHERA [Suspect]
     Active Substance: DROXIDOPA
     Dosage: DAY 3 TO 4
     Route: 048
     Dates: start: 202008
  6. NORTHERA [Suspect]
     Active Substance: DROXIDOPA
     Dosage: DAY 5 TO 6
     Route: 048
     Dates: start: 202008
  7. NORTHERA [Suspect]
     Active Substance: DROXIDOPA
     Dosage: DAY 7 TO 8
     Route: 048
     Dates: start: 202008

REACTIONS (3)
  - Palpitations [Unknown]
  - Nausea [Unknown]
  - Dizziness [Unknown]
